FAERS Safety Report 7988840-3 (Version None)
Quarter: 2011Q4

REPORT INFORMATION
  Report Type: 
  Country: None (occurrence: None)
  Receive Date: 20111219
  Receipt Date: 20111207
  Transmission Date: 20120403
  Serious: Yes (Hospitalization, Other)
  Sender: FDA-Public Use
  Company Number: JP-SHIRE-ALL1-2011-02925

PATIENT
  Age: 69 Year
  Sex: Male

DRUGS (1)
  1. FOSRENOL [Suspect]
     Indication: HYPERPHOSPHATAEMIA
     Dosage: 750MG, UNKNOWN
     Route: 048
     Dates: start: 20110601

REACTIONS (2)
  - LOBAR PNEUMONIA [None]
  - FOREIGN BODY ASPIRATION [None]
